FAERS Safety Report 7704508-2 (Version None)
Quarter: 2011Q3

REPORT INFORMATION
  Report Type: 
  Country: None (occurrence: None)
  Receive Date: 20110823
  Receipt Date: 20110812
  Transmission Date: 20111222
  Serious: Yes (Hospitalization)
  Sender: FDA-Public Use
  Company Number: DK-NOVOPROD-326636

PATIENT
  Sex: Male
  Weight: 136 kg

DRUGS (6)
  1. LANSOPRAZOL [Concomitant]
     Indication: GASTRITIS
     Dosage: UNK
     Dates: start: 20060101
  2. CENTYL [Concomitant]
     Indication: HYPERTENSION
     Dosage: UNK
     Dates: start: 20090101
  3. CYMBALTA [Concomitant]
     Indication: DEPRESSION
     Dosage: UNK
     Dates: start: 20030101
  4. VICTOZA [Suspect]
     Indication: TYPE 2 DIABETES MELLITUS
     Dosage: 0.3 MG, QD
     Route: 058
     Dates: start: 20110323, end: 20110404
  5. MINDIAB [Concomitant]
     Indication: TYPE 2 DIABETES MELLITUS
     Dosage: UNK
     Dates: start: 20090101
  6. SULFASALAZINE [Concomitant]
     Indication: COLITIS ULCERATIVE
     Dosage: UNK
     Dates: start: 19820101

REACTIONS (2)
  - CONDITION AGGRAVATED [None]
  - COLITIS ULCERATIVE [None]
